FAERS Safety Report 25564156 (Version 1)
Quarter: 2025Q3

REPORT INFORMATION
  Report Type: Spontaneous
  Country: CN (occurrence: CN)
  Receive Date: 20250716
  Receipt Date: 20250716
  Transmission Date: 20251021
  Serious: Yes (Hospitalization, Other)
  Sender: BAXTER
  Company Number: None

PATIENT
  Age: 49 Year
  Sex: Female

DRUGS (4)
  1. CYCLOPHOSPHAMIDE [Suspect]
     Active Substance: CYCLOPHOSPHAMIDE
     Indication: Hormone receptor positive breast cancer
     Dosage: 0.82 G, QD
     Route: 041
     Dates: start: 20250626, end: 20250626
  2. SODIUM CHLORIDE [Suspect]
     Active Substance: SODIUM CHLORIDE
     Dosage: 100 ML, QD (EPIRUBICIN + 0.9% NS)
     Route: 041
     Dates: start: 20250626, end: 20250626
  3. SODIUM CHLORIDE [Suspect]
     Active Substance: SODIUM CHLORIDE
     Dosage: 100 ML, QD (CYCLOPHOSPHAMIDE + 0.9% NS)
     Route: 041
     Dates: start: 20250626, end: 20250626
  4. EPIRUBICIN [Suspect]
     Active Substance: EPIRUBICIN
     Indication: Hormone receptor positive breast cancer
     Dosage: 120 MG, QD (PHARMORUBICIN INJECTION POWDER FOR NEEDLE)
     Route: 041
     Dates: start: 20250626, end: 20250626

REACTIONS (1)
  - Myelosuppression [Recovered/Resolved]

NARRATIVE: CASE EVENT DATE: 20250704
